FAERS Safety Report 12384419 (Version 1)
Quarter: 2016Q2

REPORT INFORMATION
  Report Type: Spontaneous
  Country: US (occurrence: US)
  Receive Date: 20160519
  Receipt Date: 20160519
  Transmission Date: 20160815
  Serious: No
  Sender: FDA-Public Use
  Company Number: US-TEVA-577076USA

PATIENT

DRUGS (2)
  1. NEOMYCIN [Suspect]
     Active Substance: NEOMYCIN
  2. NABUMETONE. [Suspect]
     Active Substance: NABUMETONE

REACTIONS (1)
  - Product label issue [Unknown]
